FAERS Safety Report 25125638 (Version 2)
Quarter: 2025Q1

REPORT INFORMATION
  Report Type: Spontaneous
  Country: PT (occurrence: IE)
  Receive Date: 20250326
  Receipt Date: 20250328
  Transmission Date: 20250409
  Serious: Yes (Other)
  Sender: MYLAN
  Company Number: PT-MYLANLABS-2025M1025354

PATIENT

DRUGS (1)
  1. PHENYTOIN SODIUM [Suspect]
     Active Substance: PHENYTOIN SODIUM
     Indication: Product used for unknown indication

REACTIONS (4)
  - Toxicity to various agents [Unknown]
  - Accidental overdose [Unknown]
  - Product physical issue [Unknown]
  - Product colour issue [Unknown]
